FAERS Safety Report 12001423 (Version 3)
Quarter: 2016Q1

REPORT INFORMATION
  Report Type: Spontaneous
  Country: US (occurrence: US)
  Receive Date: 20160204
  Receipt Date: 20160223
  Transmission Date: 20160526
  Serious: Yes (Other)
  Sender: FDA-Public Use
  Company Number: US-PFIZER INC-2016054836

PATIENT
  Age: 62 Year
  Sex: Male

DRUGS (6)
  1. LYRICA [Suspect]
     Active Substance: PREGABALIN
     Indication: NERVE COMPRESSION
     Dosage: 900 MG, DAILY
     Dates: start: 2014
  2. LYRICA [Suspect]
     Active Substance: PREGABALIN
     Dosage: 200 MG, 2X/DAY
     Dates: start: 2015
  3. LYRICA [Suspect]
     Active Substance: PREGABALIN
     Indication: NERVE COMPRESSION
     Dosage: 900 MG, DAILY
     Dates: start: 2007
  4. AMLODIPINE BESILATE [Suspect]
     Active Substance: AMLODIPINE BESYLATE
     Indication: HYPERTENSION
     Dosage: 10 MG, 1X/DAY
     Route: 048
  5. LYRICA [Suspect]
     Active Substance: PREGABALIN
     Indication: SCIATIC NERVE NEUROPATHY
     Dosage: 600 MG, DAILY
  6. LYRICA [Suspect]
     Active Substance: PREGABALIN
     Indication: SCIATIC NERVE NEUROPATHY
     Dosage: 600 MG, DAILY
     Dates: end: 2015

REACTIONS (29)
  - Post procedural inflammation [Unknown]
  - Lung disorder [Unknown]
  - Withdrawal syndrome [Unknown]
  - Mouth swelling [Recovered/Resolved]
  - Intervertebral disc degeneration [Unknown]
  - Foreign body [Unknown]
  - Neck injury [Unknown]
  - Melaena [Not Recovered/Not Resolved]
  - Swollen tongue [Recovered/Resolved]
  - Gastrointestinal tract irritation [Not Recovered/Not Resolved]
  - Gait disturbance [Not Recovered/Not Resolved]
  - Diarrhoea [Not Recovered/Not Resolved]
  - Weight decreased [Not Recovered/Not Resolved]
  - Constipation [Not Recovered/Not Resolved]
  - Insomnia [Unknown]
  - Oesophageal food impaction [Recovered/Resolved]
  - Product size issue [Unknown]
  - Intestinal prolapse [Recovered/Resolved]
  - Dyspepsia [Unknown]
  - Weight fluctuation [Not Recovered/Not Resolved]
  - Faeces discoloured [Not Recovered/Not Resolved]
  - Dyspnoea [Not Recovered/Not Resolved]
  - Overdose [Unknown]
  - Dysphagia [Not Recovered/Not Resolved]
  - Accident [Unknown]
  - Tongue biting [Recovered/Resolved]
  - Abdominal pain [Not Recovered/Not Resolved]
  - Burning sensation [Not Recovered/Not Resolved]
  - Mouth haemorrhage [Recovered/Resolved]

NARRATIVE: CASE EVENT DATE: 2013
